FAERS Safety Report 23831297 (Version 1)
Quarter: 2024Q2

REPORT INFORMATION
  Report Type: Spontaneous
  Country: US (occurrence: None)
  Receive Date: 20240507
  Receipt Date: 20240507
  Transmission Date: 20240716
  Serious: No
  Sender: FDA-Public Use
  Company Number: None

PATIENT
  Age: 42 Year
  Sex: Female
  Weight: 74.25 kg

DRUGS (3)
  1. LASTACAFT [Suspect]
     Active Substance: ALCAFTADINE
     Indication: Eye allergy
     Dosage: 1 DROP DAILY OPHTHALMIC ?
     Route: 047
  2. ZYRTEC [Concomitant]
     Active Substance: CETIRIZINE HYDROCHLORIDE
  3. FLONASE [Concomitant]
     Active Substance: FLUTICASONE PROPIONATE

REACTIONS (7)
  - Eyelid skin dryness [None]
  - Application site exfoliation [None]
  - Secretion discharge [None]
  - Eyelid margin crusting [None]
  - Conjunctivitis [None]
  - Eye pruritus [None]
  - Ocular hyperaemia [None]
